FAERS Safety Report 18516848 (Version 1)
Quarter: 2020Q4

REPORT INFORMATION
  Report Type: Spontaneous
  Country: US (occurrence: US)
  Receive Date: 20201118
  Receipt Date: 20201118
  Transmission Date: 20210114
  Serious: Yes (Death)
  Sender: FDA-Public Use
  Company Number: None

PATIENT
  Age: 59 Year
  Sex: Female

DRUGS (11)
  1. OPTICHAMBER [Concomitant]
  2. ALBUTEROL. [Concomitant]
     Active Substance: ALBUTEROL
  3. FLUCONAZOLE. [Concomitant]
     Active Substance: FLUCONAZOLE
  4. DAPSONE. [Concomitant]
     Active Substance: DAPSONE
  5. DEXAMETHASON [Concomitant]
     Active Substance: DEXAMETHASONE
  6. LEVETIRACETA [Concomitant]
     Active Substance: LEVETIRACETAM
  7. ONDANSETRON [Concomitant]
     Active Substance: ONDANSETRON
  8. TEMOZOLOMIDE. [Suspect]
     Active Substance: TEMOZOLOMIDE
     Indication: BRAIN NEOPLASM MALIGNANT
     Route: 048
     Dates: start: 20200908, end: 20201115
  9. NYSTATIN. [Concomitant]
     Active Substance: NYSTATIN
  10. METOPROLOL TARTRATE. [Concomitant]
     Active Substance: METOPROLOL TARTRATE
  11. OXYCODONE AND ACETAMINOPHEN [Concomitant]
     Active Substance: ACETAMINOPHEN\OXYCODONE HYDROCHLORIDE

REACTIONS (1)
  - Death [None]

NARRATIVE: CASE EVENT DATE: 20201115
